FAERS Safety Report 7180007-4 (Version None)
Quarter: 2010Q4

REPORT INFORMATION
  Report Type: 
  Country: None (occurrence: None)
  Receive Date: 20101123
  Receipt Date: 20100811
  Transmission Date: 20110411
  Serious: No
  Sender: FDA-Public Use
  Company Number: 016786

PATIENT
  Sex: Female
  Weight: 52.2 kg

DRUGS (10)
  1. CIMZIA [Suspect]
     Indication: CROHN'S DISEASE
     Dosage: (400 MG 1X/2 WEEKS SUBCUTANEOUS)
     Route: 058
     Dates: start: 20100703
  2. LIBRAX [Concomitant]
  3. PANCREASE /000014701/ [Concomitant]
  4. CHLORDIAZEPOXIDE W/CLIDINIUM [Concomitant]
  5. LORTAB [Concomitant]
  6. CITALOPRAM [Concomitant]
  7. PROCARDIA XL [Concomitant]
  8. XANAX [Concomitant]
  9. MEGACE [Concomitant]
  10. VITAMIN B-12 [Concomitant]

REACTIONS (7)
  - ABDOMINAL PAIN UPPER [None]
  - BODY TEMPERATURE INCREASED [None]
  - BONE PAIN [None]
  - DECREASED APPETITE [None]
  - DIARRHOEA [None]
  - GAIT DISTURBANCE [None]
  - MEMORY IMPAIRMENT [None]
